FAERS Safety Report 24010677 (Version 1)
Quarter: 2024Q2

REPORT INFORMATION
  Report Type: Spontaneous
  Country: US (occurrence: US)
  Receive Date: 20240625
  Receipt Date: 20240625
  Transmission Date: 20240716
  Serious: No
  Sender: FDA-Public Use
  Company Number: US-AMRYT PHARMACEUTICALS DAC-AEGR007165

PATIENT
  Sex: Female
  Weight: 10 kg

DRUGS (1)
  1. FILSUVEZ [Suspect]
     Active Substance: BIRCH TRITERPENES
     Indication: Epidermolysis bullosa
     Dosage: 10 PERCENT W/W GEL (23.4 G), APPLY A 1 MM LAYER TO AFFECTED WOUND SURFACE(S) AT EACH DRESSING CHANGE
     Route: 061
     Dates: start: 20240419

REACTIONS (5)
  - Application site dryness [Recovered/Resolved]
  - Skin exfoliation [Unknown]
  - Blister [Unknown]
  - Wound complication [Unknown]
  - Intentional product use issue [Unknown]
